FAERS Safety Report 9783152 (Version 1)
Quarter: 2013Q4

REPORT INFORMATION
  Report Type: Spontaneous
  Country: FR (occurrence: FR)
  Receive Date: 20131226
  Receipt Date: 20131226
  Transmission Date: 20140711
  Serious: Yes (Hospitalization)
  Sender: FDA-Public Use
  Company Number: FR-SA-2013SA130933

PATIENT
  Age: 83 Year
  Sex: Male
  Weight: 76 kg

DRUGS (10)
  1. COAPROVEL [Suspect]
     Indication: HYPERTENSION
     Route: 048
     Dates: end: 20130902
  2. NICARDIPINE HYDROCHLORIDE [Concomitant]
     Dosage: STRENGTH: 50 MG
     Route: 048
  3. OMEPRAZOLE [Concomitant]
  4. LIORESAL [Concomitant]
  5. ALLOPURINOL [Concomitant]
  6. SIMVASTATIN [Concomitant]
  7. PREVISCAN [Concomitant]
  8. DIGOXIN [Concomitant]
  9. LYRICA [Concomitant]
  10. CELIPROLOL [Concomitant]
     Dosage: STRENGTH: 200 MG

REACTIONS (3)
  - Dehydration [Recovered/Resolved]
  - Hyperlactacidaemia [Recovered/Resolved]
  - Alkalosis [Recovered/Resolved]
